FAERS Safety Report 6501721-7 (Version None)
Quarter: 2009Q4

REPORT INFORMATION
  Report Type: 
  Country: None (occurrence: None)
  Receive Date: 20091208
  Receipt Date: 20091124
  Transmission Date: 20100525
  Serious: Yes (Other)
  Sender: FDA-Public Use
  Company Number: B0610689A

PATIENT
  Age: 46 Year
  Sex: Male

DRUGS (3)
  1. ZIDOVUDINE [Suspect]
     Indication: HIV INFECTION
  2. LAMIVUDINE [Suspect]
     Indication: HIV INFECTION
  3. LOPINAVIR + RITONAVIR (FORMULATION UNKN)                  (LOPINAVIR + [Suspect]
     Indication: HIV INFECTION

REACTIONS (5)
  - APHASIA [None]
  - ENCEPHALITIS [None]
  - HYPOAESTHESIA [None]
  - IMMUNE RECONSTITUTION SYNDROME [None]
  - SYPHILIS [None]
